FAERS Safety Report 24956720 (Version 1)
Quarter: 2025Q1

REPORT INFORMATION
  Report Type: Spontaneous
  Country: US (occurrence: None)
  Receive Date: 20250206
  Receipt Date: 20250206
  Transmission Date: 20250408
  Serious: Yes (Other)
  Sender: FDA-CTU
  Company Number: None

PATIENT
  Age: 33 Year
  Sex: Female
  Weight: 53.07 kg

DRUGS (2)
  1. NEXPLANON [Suspect]
     Active Substance: ETONOGESTREL
  2. IRON [Concomitant]
     Active Substance: IRON

REACTIONS (1)
  - Heavy menstrual bleeding [None]

NARRATIVE: CASE EVENT DATE: 20230221
